FAERS Safety Report 11197570 (Version 2)
Quarter: 2015Q2

REPORT INFORMATION
  Report Type: Report from Study
  Country: CH (occurrence: CH)
  Receive Date: 20150617
  Receipt Date: 20150619
  Transmission Date: 20150821
  Serious: Yes (Hospitalization)
  Sender: FDA-Public Use
  Company Number: CH-ABBVIE-15P-151-1408463-00

PATIENT
  Sex: Male

DRUGS (1)
  1. DUODOPA [Suspect]
     Active Substance: CARBIDOPA\LEVODOPA
     Indication: PARKINSON^S DISEASE
     Dosage: 24TH THERAPY/  CONTINUOUS DOSE DAY: 5.8ML/HCONTINUOUS DOSE NIGHT: 3.5ML/H
     Route: 050
     Dates: start: 20150414

REACTIONS (1)
  - Pneumonia [Unknown]
